FAERS Safety Report 9535068 (Version 5)
Quarter: 2013Q4

REPORT INFORMATION
  Report Type: Report from Study
  Country: PH (occurrence: PH)
  Receive Date: 20130918
  Receipt Date: 20131209
  Transmission Date: 20140711
  Serious: Yes (Death, Hospitalization)
  Sender: FDA-Public Use
  Company Number: PH-B.I. PHARMACEUTICALS,INC./RIDGEFIELD-2013-RU-00667BP

PATIENT
  Age: 62 Year
  Sex: Male
  Weight: 64.7 kg

DRUGS (23)
  1. BI 10773 [Suspect]
     Indication: TYPE 2 DIABETES MELLITUS
     Dosage: 25 MG
     Route: 048
     Dates: start: 20120806, end: 20130626
  2. BI 10773 [Suspect]
     Indication: TYPE 2 DIABETES MELLITUS
     Dosage: 25 MG
     Route: 048
     Dates: start: 20120806, end: 20130626
  3. TRIAL PROCEDURE [Suspect]
     Indication: TYPE 2 DIABETES MELLITUS
  4. COMBIVENT [Suspect]
     Indication: UPPER RESPIRATORY TRACT INFECTION
     Dosage: 2.5 MG
     Route: 048
     Dates: start: 20130807, end: 20130809
  5. FUROSEMIDE [Suspect]
     Indication: HEPATIC MASS
     Dosage: 20 MG
     Route: 048
     Dates: start: 20130628, end: 20130703
  6. OMEPRAZOLE [Suspect]
     Indication: HEPATIC MASS
     Dosage: 40 MG
     Route: 048
     Dates: start: 20130701, end: 20130729
  7. SPIRONOLACTONE [Suspect]
     Indication: HEPATIC MASS
     Dosage: 300 MG
     Route: 048
     Dates: start: 20130716, end: 20130725
  8. KETOROLAC [Suspect]
     Indication: HEPATIC MASS
     Dosage: 30 MG
     Route: 048
     Dates: start: 20130722, end: 20130729
  9. PIPERACILLIN NA + TAZOBATAM [Suspect]
     Indication: PNEUMONIA
     Dates: start: 20130701, end: 20130708
  10. RANITIDINE [Suspect]
     Indication: HEPATIC MASS
     Dosage: 50 MG
     Route: 042
     Dates: start: 20130721, end: 20130721
  11. SPIRONOLACTONE [Suspect]
     Indication: HEPATIC MASS
     Dosage: 200 MG
     Route: 048
     Dates: start: 20130714, end: 20130714
  12. TRAMADOL [Suspect]
     Indication: HEPATIC MASS
     Dosage: 150 MG
     Route: 048
     Dates: start: 20130806, end: 20130813
  13. TRAMADOL [Suspect]
     Indication: HEPATIC MASS
     Dosage: 150 MG
     Route: 042
     Dates: start: 20130814, end: 20130821
  14. OMEPRAZOLE [Suspect]
     Indication: HEPATIC MASS
     Dosage: 80 MG
     Route: 042
     Dates: start: 20130806, end: 20130812
  15. OMEPRAZOLE [Suspect]
     Indication: HEPATIC MASS
     Dosage: 80 MG
     Route: 042
     Dates: start: 20130701, end: 20130729
  16. RANITIDINE [Suspect]
     Indication: HEPATIC MASS
     Dosage: 50 MG
     Route: 042
     Dates: start: 20130709, end: 20130709
  17. SPIRONOLACTONE [Suspect]
     Indication: HEPATIC MASS
     Dosage: 100 MG
     Route: 048
     Dates: start: 20130726, end: 20130730
  18. FUROSEMIDE [Suspect]
     Indication: HEPATIC MASS
     Dosage: 40 MG
     Route: 042
     Dates: start: 20130704, end: 20130704
  19. FUROSEMIDE [Suspect]
     Indication: HEPATIC MASS
     Dosage: 40 MG
     Route: 042
     Dates: start: 20130705, end: 20130726
  20. FUROSEMIDE [Suspect]
     Indication: HEPATIC MASS
     Dosage: 80 MG
     Route: 042
     Dates: start: 20130727, end: 20130731
  21. METOCLOPRAMIDE [Suspect]
     Indication: HEPATIC MASS
     Dosage: 10 MG
     Route: 042
     Dates: start: 20130808, end: 20130808
  22. LEVOFLOXACIN [Suspect]
     Indication: UPPER RESPIRATORY TRACT INFECTION
     Dosage: 500 MG
     Route: 048
     Dates: start: 20130806, end: 20130812
  23. TRAMADOL [Concomitant]
     Indication: HEPATIC MASS
     Dates: start: 20130718, end: 20130730

REACTIONS (1)
  - Hepatic mass [Fatal]
